FAERS Safety Report 16426608 (Version 1)
Quarter: 2019Q2

REPORT INFORMATION
  Report Type: Spontaneous
  Country: DE (occurrence: DE)
  Receive Date: 20190613
  Receipt Date: 20190613
  Transmission Date: 20190711
  Serious: Yes (Hospitalization, Other)
  Sender: FDA-Public Use
  Company Number: DE-BAUSCH-BL-2019-016723

PATIENT
  Age: 62 Year
  Sex: Male

DRUGS (4)
  1. MYCOPHENOLIC ACID. [Concomitant]
     Active Substance: MYCOPHENOLIC ACID
     Indication: PEMPHIGUS
     Route: 048
  2. PREDNISOLONE. [Suspect]
     Active Substance: PREDNISOLONE
     Indication: PEMPHIGUS
     Dosage: EQUAL TO 2 MG/KG BW. HIGH-DOSE
     Route: 048
  3. PREDNISOLONE. [Suspect]
     Active Substance: PREDNISOLONE
     Dosage: GRADUALLY REDUCED OVER THE FOLLOWING MONTHS. HIGH-DOSE
     Route: 048
  4. MYCOPHENOLIC ACID. [Concomitant]
     Active Substance: MYCOPHENOLIC ACID
     Route: 048

REACTIONS (5)
  - Proteus infection [Unknown]
  - Candida infection [Unknown]
  - Sepsis [Unknown]
  - Clostridium difficile infection [Unknown]
  - General physical health deterioration [Unknown]
